FAERS Safety Report 16785294 (Version 2)
Quarter: 2019Q3

REPORT INFORMATION
  Report Type: Spontaneous
  Country: ES (occurrence: ES)
  Receive Date: 20190909
  Receipt Date: 20190916
  Transmission Date: 20191005
  Serious: Yes (Other)
  Sender: FDA-Public Use
  Company Number: PHHY2019ES208521

PATIENT
  Age: 51 Year
  Sex: Male

DRUGS (2)
  1. GAMMA-GLOBULIN [Concomitant]
     Active Substance: IMMUNE GLOBULIN NOS
     Indication: PRODUCT USED FOR UNKNOWN INDICATION
     Route: 065
  2. ARGATROBAN. [Suspect]
     Active Substance: ARGATROBAN
     Indication: ANTICOAGULANT THERAPY
     Dosage: UNK
     Route: 042

REACTIONS (2)
  - Coagulation time prolonged [Unknown]
  - Haemorrhage [Recovering/Resolving]
